FAERS Safety Report 14963270 (Version 15)
Quarter: 2021Q4

REPORT INFORMATION
  Report Type: Report from Study
  Country: CA (occurrence: CA)
  Receive Date: 20180601
  Receipt Date: 20211229
  Transmission Date: 20220303
  Serious: Yes (Hospitalization, Other)
  Sender: FDA-Public Use
  Company Number: CA-002147023-PHHY2018CA008174

PATIENT
  Age: 39 Year
  Sex: Female

DRUGS (6)
  1. DICLOFENAC [Suspect]
     Active Substance: DICLOFENAC
     Indication: Ankylosing spondylitis
     Dosage: 1 DF (50 MG), BID
     Route: 048
     Dates: start: 201711
  2. ERELZI [Suspect]
     Active Substance: ETANERCEPT-SZZS
     Indication: Ankylosing spondylitis
     Dosage: 50 MG, QW
     Route: 058
     Dates: start: 20180529
  3. ERELZI [Suspect]
     Active Substance: ETANERCEPT-SZZS
     Dosage: 50 MG, QW
     Route: 058
     Dates: start: 20211118
  4. CELEBREX [Concomitant]
     Active Substance: CELECOXIB
     Indication: Product used for unknown indication
     Dosage: 1 DF, BID
     Route: 048
     Dates: start: 2016, end: 2017
  5. COLCHICINE [Concomitant]
     Active Substance: COLCHICINE
     Indication: Product used for unknown indication
     Dosage: UNK MG
  6. CEFIXIME [Concomitant]
     Active Substance: CEFIXIME
     Indication: Product used for unknown indication
     Dosage: UNK

REACTIONS (23)
  - Anxiety [Unknown]
  - Bronchitis [Unknown]
  - Mucosal discolouration [Unknown]
  - Dehydration [Unknown]
  - Diarrhoea [Unknown]
  - Ear pain [Unknown]
  - Pyrexia [Recovered/Resolved]
  - Influenza [Unknown]
  - Fatigue [Recovering/Resolving]
  - Dyspnoea [Unknown]
  - Oropharyngeal pain [Unknown]
  - Ankylosing spondylitis [Unknown]
  - Nasopharyngitis [Unknown]
  - Injection site pain [Unknown]
  - Productive cough [Unknown]
  - Bronchospasm [Unknown]
  - Lower limb fracture [Unknown]
  - Cough [Unknown]
  - Rhinorrhoea [Unknown]
  - Nasopharyngitis [Not Recovered/Not Resolved]
  - Injection site pain [Unknown]
  - Productive cough [Unknown]
  - Inflammation [Unknown]

NARRATIVE: CASE EVENT DATE: 20180529
